FAERS Safety Report 8133169-6 (Version None)
Quarter: 2012Q1

REPORT INFORMATION
  Report Type: 
  Country: None (occurrence: None)
  Receive Date: 20120213
  Receipt Date: 20120208
  Transmission Date: 20120608
  Serious: Yes (Death, Disabling, Other)
  Sender: FDA-Public Use
  Company Number: PHHY2011JP107297

PATIENT
  Sex: Female
  Weight: 50 kg

DRUGS (3)
  1. ZOMETA [Suspect]
     Indication: METASTASES TO BONE
     Dosage: 4 MG, UNK
     Route: 041
     Dates: start: 20100222, end: 20110515
  2. ADRIAMYCIN PFS [Concomitant]
     Dosage: 4 COURCES
     Route: 065
  3. CYCLOPHOSPHAMIDE [Concomitant]
     Dosage: 4 COURCES
     Route: 065

REACTIONS (22)
  - METASTASES TO LIVER [None]
  - BREAST CANCER RECURRENT [None]
  - FISTULA [None]
  - SKIN DISORDER [None]
  - GINGIVITIS [None]
  - INFECTION [None]
  - METASTASES TO LUNG [None]
  - EXPOSED BONE IN JAW [None]
  - NEOPLASM PROGRESSION [None]
  - OSTEONECROSIS OF JAW [None]
  - ERYTHEMA [None]
  - PAIN [None]
  - LYMPH NODE PAIN [None]
  - BACTERIAL INFECTION [None]
  - METASTASES TO PLEURA [None]
  - GRANULOMA [None]
  - BONE FISTULA [None]
  - BONE SWELLING [None]
  - NEOPLASM MALIGNANT [None]
  - SKIN LESION [None]
  - PRIMARY SEQUESTRUM [None]
  - NEOPLASM SKIN [None]
